FAERS Safety Report 8947858 (Version 1)
Quarter: 2012Q4

REPORT INFORMATION
  Report Type: Report from Study
  Country: IN (occurrence: IN)
  Receive Date: 20121204
  Receipt Date: 20121204
  Transmission Date: 20130627
  Serious: Yes (Other)
  Sender: FDA-Public Use
  Company Number: IN-ABBOTT-12P-078-1017294-00

PATIENT
  Age: 26 Year
  Sex: Female

DRUGS (2)
  1. DUPHASTON [Suspect]
     Indication: MENSTRUATION IRREGULAR
     Route: 048
     Dates: start: 20120920, end: 20121009
  2. DUPHASTON [Suspect]
     Indication: METRORRHAGIA

REACTIONS (1)
  - Abortion induced [Unknown]
